FAERS Safety Report 25931658 (Version 1)
Quarter: 2025Q4

REPORT INFORMATION
  Report Type: Other
  Country: EU (occurrence: EU)
  Receive Date: 20251016
  Receipt Date: 20251016
  Transmission Date: 20260118
  Serious: Yes (Disabling, Other)
  Sender: KOWA PHARM
  Company Number: None

PATIENT

DRUGS (4)
  1. PITAVASTATIN [Suspect]
     Active Substance: PITAVASTATIN
     Indication: Hyperlipidaemia
     Dosage: 2 MG, QD
     Route: 048
     Dates: start: 20230306, end: 20250922
  2. PITAVASTATIN [Suspect]
     Active Substance: PITAVASTATIN
     Indication: Drug intolerance
  3. LANSOPRAZOLE [Concomitant]
     Active Substance: LANSOPRAZOLE
     Indication: Gastrooesophageal reflux disease
     Dosage: 15 MG, QD
     Route: 048
     Dates: start: 20190702
  4. LANSOPRAZOLE [Concomitant]
     Active Substance: LANSOPRAZOLE
     Indication: Diaphragmatic hernia

REACTIONS (2)
  - Tendonitis [Not Recovered/Not Resolved]
  - Myalgia [Not Recovered/Not Resolved]

NARRATIVE: CASE EVENT DATE: 20230306
